FAERS Safety Report 8236927-2 (Version None)
Quarter: 2012Q1

REPORT INFORMATION
  Report Type: 
  Country: None (occurrence: None)
  Receive Date: 20120326
  Receipt Date: 20120326
  Transmission Date: 20120608
  Serious: No
  Sender: FDA-Public Use
  Company Number: None

PATIENT
  Age: 30 Year
  Sex: Female
  Weight: 102.0593 kg

DRUGS (1)
  1. NORGESTIMATE AND ETHINYL ESTRADIOL [Suspect]
     Indication: CONTRACEPTION
     Dosage: 1 BY MOUTH DAILY 7PM
     Route: 048
     Dates: start: 20120201, end: 20120309

REACTIONS (6)
  - OEDEMA PERIPHERAL [None]
  - UPPER EXTREMITY MASS [None]
  - UNEVALUABLE EVENT [None]
  - JOINT SWELLING [None]
  - LOWER EXTREMITY MASS [None]
  - MUSCULOSKELETAL DISORDER [None]
